FAERS Safety Report 13017058 (Version 1)
Quarter: 2016Q4

REPORT INFORMATION
  Report Type: Spontaneous
  Country: US (occurrence: US)
  Receive Date: 20161208
  Receipt Date: 20161208
  Transmission Date: 20170207
  Serious: No
  Sender: FDA-Public Use
  Company Number: None

PATIENT
  Age: 57 Year
  Sex: Male

DRUGS (1)
  1. RIBAVIRIN CAP 200MG [Suspect]
     Active Substance: RIBAVIRIN
     Indication: HEPATITIS C

REACTIONS (2)
  - Headache [None]
  - Diarrhoea [None]

NARRATIVE: CASE EVENT DATE: 20161205
